FAERS Safety Report 13871952 (Version 1)
Quarter: 2017Q3

REPORT INFORMATION
  Report Type: Spontaneous
  Country: GB (occurrence: GB)
  Receive Date: 20170816
  Receipt Date: 20170816
  Transmission Date: 20171127
  Serious: Yes (Hospitalization)
  Sender: FDA-Public Use
  Company Number: GB-PFIZER INC-2017350072

PATIENT
  Age: 95 Year
  Sex: Male

DRUGS (12)
  1. ASPIRIN /00346701/ [Concomitant]
     Active Substance: ASCORBIC ACID\ASPIRIN
     Dosage: 75 MG, 1X/DAY
  2. DORZOLAMIDE [Concomitant]
     Active Substance: DORZOLAMIDE
     Dosage: 1 DROP TWICE A DAY (RIGHT EYE)
  3. AMLODIPINE [Concomitant]
     Active Substance: AMLODIPINE BESYLATE
     Dosage: 10 MBQ, 1X/DAY
  4. AMOXICILLIN. [Concomitant]
     Active Substance: AMOXICILLIN
     Dosage: 500 MG, 3X/DAY
     Dates: start: 20170711
  5. XALACOM [Concomitant]
     Active Substance: LATANOPROST\TIMOLOL MALEATE
     Dosage: 1 DROP ONCE A DAY (RIGHT EYE EACH NIGHT)
  6. LANSOPRAZOLE. [Concomitant]
     Active Substance: LANSOPRAZOLE
     Dosage: 15 MG ONCE A DAY (IN THE MORNING)
  7. AMLODIPINE BESILATE [Suspect]
     Active Substance: AMLODIPINE BESYLATE
     Indication: HYPERTENSION
     Dosage: 10 MG ONCE DAILY IN THE MORNING (OM)
     Dates: end: 20170712
  8. ADCAL D3 [Concomitant]
     Active Substance: CALCIUM CARBONATE\CHOLECALCIFEROL
     Dosage: 1 DF, 2X/DAY
  9. IBANDRONIC ACID. [Concomitant]
     Active Substance: IBANDRONIC ACID
     Dosage: 150 MG ONCE A DAY (1 HOUR BEFORE BREAKFAST)
  10. CETRABEN /01007601/ [Concomitant]
     Dosage: 3 TO 4 TIMES A FAY
     Dates: start: 20170601
  11. TRIMETHOPRIM. [Concomitant]
     Active Substance: TRIMETHOPRIM
     Dosage: 200 MG, 2X/DAY
     Dates: start: 20170511
  12. CIPROFLOXACIN. [Concomitant]
     Active Substance: CIPROFLOXACIN
     Dosage: 500 MG, 2X/DAY
     Dates: start: 20170515

REACTIONS (3)
  - Pneumonia [Unknown]
  - Dehydration [Unknown]
  - Fall [Recovered/Resolved with Sequelae]

NARRATIVE: CASE EVENT DATE: 20170713
